FAERS Safety Report 8928166 (Version 2)
Quarter: 2013Q2

REPORT INFORMATION
  Report Type: Spontaneous
  Country: DK (occurrence: DK)
  Receive Date: 20121128
  Receipt Date: 20130621
  Transmission Date: 20140414
  Serious: Yes (Other)
  Sender: FDA-Public Use
  Company Number: PHHY2012DK107383

PATIENT
  Age: 81 Year
  Sex: Female

DRUGS (9)
  1. ZOMETA [Suspect]
     Indication: PLASMA CELL MYELOMA
     Dosage: 4 MG PER 100 ML, EVERY FOUR WEEKS
     Route: 042
     Dates: start: 200612, end: 200812
  2. PREDNISOLONE [Suspect]
     Indication: ARTHRITIS
     Dosage: 100 MG, ONCE DAILY
     Route: 048
     Dates: start: 200701
  3. PREDNISOLONE [Suspect]
     Dosage: UNK
     Dates: start: 200811
  4. ALKERAN [Suspect]
     Indication: PLASMA CELL MYELOMA
     Dosage: 8 MG, ONCE A DAILY
     Route: 048
     Dates: start: 200701
  5. ALKERAN [Suspect]
     Indication: PLASMA CELL MYELOMA
  6. HJERTEMAGNYL [Concomitant]
     Dosage: UNK UKN, UNK
  7. AMLODIPINE [Concomitant]
     Indication: BLOOD CHOLESTEROL INCREASED
     Dosage: UNK UKN, UNK
  8. SIMVASTATIN [Concomitant]
     Indication: BLOOD CHOLESTEROL INCREASED
     Dosage: UNK UKN, UNK
  9. VITAMIN D NOS [Concomitant]
     Dosage: UNK UKN, UNK

REACTIONS (4)
  - Osteomyelitis [Unknown]
  - Osteonecrosis of jaw [Not Recovered/Not Resolved]
  - Primary sequestrum [Unknown]
  - Impaired healing [Unknown]
